FAERS Safety Report 17031034 (Version 1)
Quarter: 2019Q4

REPORT INFORMATION
  Report Type: Spontaneous
  Country: US (occurrence: US)
  Receive Date: 20191114
  Receipt Date: 20191114
  Transmission Date: 20200122
  Serious: Yes (Life-Threatening, Hospitalization, Other)
  Sender: FDA-Public Use
  Company Number: US-BAYER-2019-199550

PATIENT
  Age: 67 Year
  Sex: Male

DRUGS (2)
  1. GADAVIST [Suspect]
     Active Substance: GADOBUTROL
     Indication: X-RAY
     Dosage: 2.5 ML, ONCE
     Route: 037
     Dates: start: 20181231, end: 20181231
  2. DEXAMETASON [DEXAMETHASONE] [Concomitant]
     Active Substance: DEXAMETHASONE
     Dosage: 10 MG

REACTIONS (5)
  - Subarachnoid haemorrhage [None]
  - Generalised tonic-clonic seizure [Recovered/Resolved]
  - Infusion site extravasation [Recovered/Resolved]
  - Incorrect route of product administration [None]
  - Product prescribing error [None]
